FAERS Safety Report 19916241 (Version 1)
Quarter: 2021Q4

REPORT INFORMATION
  Report Type: Spontaneous
  Country: US (occurrence: US)
  Receive Date: 20211004
  Receipt Date: 20211004
  Transmission Date: 20220303
  Serious: No
  Sender: FDA-Public Use
  Company Number: US-OTSUKA-2020_027400

PATIENT
  Age: 38 Year
  Sex: Male

DRUGS (2)
  1. ABILIFY MAINTENA [Suspect]
     Active Substance: ARIPIPRAZOLE
     Indication: Schizophrenia
     Dosage: 400 MG, QM
     Route: 065
  2. ABILIFY MAINTENA [Suspect]
     Active Substance: ARIPIPRAZOLE
     Dosage: 620 MG, QM
     Route: 065
     Dates: start: 2020

REACTIONS (7)
  - Soliloquy [Not Recovered/Not Resolved]
  - Behaviour disorder [Not Recovered/Not Resolved]
  - Abnormal behaviour [Not Recovered/Not Resolved]
  - Discomfort [Not Recovered/Not Resolved]
  - Anger [Not Recovered/Not Resolved]
  - Therapeutic response shortened [Unknown]
  - Overdose [Unknown]

NARRATIVE: CASE EVENT DATE: 20200101
